FAERS Safety Report 5723774-6 (Version None)
Quarter: 2008Q2

REPORT INFORMATION
  Report Type: 
  Country: None (occurrence: None)
  Receive Date: 20080430
  Receipt Date: 20080428
  Transmission Date: 20081010
  Serious: Yes (Hospitalization)
  Sender: FDA-Public Use
  Company Number: US-MERCK-0804USA05138

PATIENT
  Sex: Female

DRUGS (2)
  1. SINGULAIR [Suspect]
     Route: 048
  2. ANTIMICROBIAL (UNSPECIFIED) [Concomitant]
     Route: 065

REACTIONS (7)
  - AGITATION [None]
  - IRRITABILITY [None]
  - MALAISE [None]
  - PALPITATIONS [None]
  - PARONYCHIA [None]
  - RESTLESSNESS [None]
  - THINKING ABNORMAL [None]
